FAERS Safety Report 26202009 (Version 1)
Quarter: 2025Q4

REPORT INFORMATION
  Report Type: Spontaneous
  Country: KR (occurrence: KR)
  Receive Date: 20251226
  Receipt Date: 20251226
  Transmission Date: 20260119
  Serious: Yes (Death, Other)
  Sender: TAKEDA
  Company Number: KR-TAKEDA-2025TUS118749

PATIENT
  Age: 66 Year
  Sex: Male

DRUGS (1)
  1. FRUZAQLA [Suspect]
     Active Substance: FRUQUINTINIB
     Indication: Colon cancer
     Dosage: 5 MILLIGRAM

REACTIONS (1)
  - Colon cancer [Fatal]
